FAERS Safety Report 21328582 (Version 2)
Quarter: 2022Q3

REPORT INFORMATION
  Report Type: Spontaneous
  Country: US (occurrence: None)
  Receive Date: 20220913
  Receipt Date: 20220916
  Transmission Date: 20221027
  Serious: Yes (Other)
  Sender: FDA-Public Use
  Company Number: US-Merck Healthcare KGaA-9349619

PATIENT
  Sex: Male

DRUGS (1)
  1. BAVENCIO [Suspect]
     Active Substance: AVELUMAB
     Indication: Product used for unknown indication

REACTIONS (5)
  - Thrombosis [Unknown]
  - Hyperthyroidism [Unknown]
  - Blood pressure abnormal [Unknown]
  - Hair growth abnormal [Unknown]
  - Weight increased [Unknown]
